FAERS Safety Report 14467059 (Version 1)
Quarter: 2018Q1

REPORT INFORMATION
  Report Type: Spontaneous
  Country: GB (occurrence: GB)
  Receive Date: 20180131
  Receipt Date: 20180131
  Transmission Date: 20180509
  Serious: Yes (Other)
  Sender: FDA-Public Use
  Company Number: GB-BAXTER-2018BAX002986

PATIENT
  Age: 71 Year
  Sex: Male

DRUGS (3)
  1. METRONIDAZOLE 5 MG/ML SOLUTION FOR INFUSION [Suspect]
     Active Substance: METRONIDAZOLE
     Indication: NONINFECTIVE GINGIVITIS
     Route: 065
     Dates: start: 2017, end: 2017
  2. METRONIDAZOLE. [Suspect]
     Active Substance: METRONIDAZOLE
     Indication: NONINFECTIVE GINGIVITIS
     Dosage: METRONIDAZOLE TABLETS 400 MG
     Route: 065
     Dates: start: 20171109
  3. ELIQUIS [Concomitant]
     Active Substance: APIXABAN
     Indication: ANTICOAGULANT THERAPY
     Dosage: UNKNOWN
     Route: 065

REACTIONS (4)
  - Gingivitis [Recovered/Resolved]
  - Drug effect incomplete [Recovered/Resolved]
  - Condition aggravated [Recovered/Resolved]
  - Blood glucose fluctuation [Recovered/Resolved]
